FAERS Safety Report 12153460 (Version 3)
Quarter: 2016Q2

REPORT INFORMATION
  Report Type: Spontaneous
  Country: US (occurrence: US)
  Receive Date: 20160306
  Receipt Date: 20160617
  Transmission Date: 20160815
  Serious: No
  Sender: FDA-Public Use
  Company Number: US-ELI_LILLY_AND_COMPANY-US201602002236

PATIENT
  Age: 56 Year
  Sex: Female
  Weight: 102.4 kg

DRUGS (18)
  1. HUMULIN N [Suspect]
     Active Substance: INSULIN HUMAN
     Indication: HYPERGLYCAEMIA
     Dosage: 26 U, BID
     Route: 058
  2. AMFETAMINE W/DEXAMFETAMINE [Concomitant]
     Active Substance: AMPHETAMINE SULFATE\DEXTROAMPHETAMINE
  3. CYCLOBENZAPRINE [Concomitant]
     Active Substance: CYCLOBENZAPRINE
  4. LIRAGLUTIDE [Concomitant]
     Active Substance: LIRAGLUTIDE
  5. LOSARTAN. [Concomitant]
     Active Substance: LOSARTAN
  6. ALBUTEROL                          /00139502/ [Concomitant]
     Active Substance: ALBUTEROL
  7. OMEPRAZOLE. [Concomitant]
     Active Substance: OMEPRAZOLE
  8. HUMULIN R [Concomitant]
     Active Substance: INSULIN HUMAN
  9. FUROSEMIDE. [Concomitant]
     Active Substance: FUROSEMIDE
  10. HYDROMORPHONE [Concomitant]
     Active Substance: HYDROMORPHONE
  11. VICTOZA [Concomitant]
     Active Substance: LIRAGLUTIDE
  12. OXYCODON [Concomitant]
     Active Substance: OXYCODONE
  13. MAGNESIUM                          /07349401/ [Concomitant]
  14. CETIRIZINE [Concomitant]
     Active Substance: CETIRIZINE HYDROCHLORIDE
  15. CYCLOSPORINE. [Concomitant]
     Active Substance: CYCLOSPORINE
  16. HUMULIN N [Suspect]
     Active Substance: INSULIN HUMAN
     Indication: TYPE 2 DIABETES MELLITUS
     Dosage: 30 U, BID
     Route: 058
     Dates: start: 20150804
  17. CELECOXIB. [Concomitant]
     Active Substance: CELECOXIB
  18. GABAPENTIN. [Concomitant]
     Active Substance: GABAPENTIN

REACTIONS (2)
  - Erythema [Unknown]
  - Gait disturbance [Recovered/Resolved]

NARRATIVE: CASE EVENT DATE: 20160111
